FAERS Safety Report 20741434 (Version 7)
Quarter: 2023Q1

REPORT INFORMATION
  Report Type: Spontaneous
  Country: BE (occurrence: BE)
  Receive Date: 20220422
  Receipt Date: 20230102
  Transmission Date: 20230418
  Serious: Yes (Life-Threatening, Hospitalization)
  Sender: FDA-Public Use
  Company Number: BE-NOVARTISPH-NVSC2022BE090789

PATIENT
  Age: 77 Year
  Sex: Male
  Weight: 80 kg

DRUGS (14)
  1. METFORMIN [Suspect]
     Active Substance: METFORMIN HYDROCHLORIDE
     Indication: Type 2 diabetes mellitus
     Dosage: 1700 MG, QD (850 MG, 2X/DAY)
     Route: 048
     Dates: start: 20211027, end: 20220404
  2. ALDACTONE [Suspect]
     Active Substance: SPIRONOLACTONE
     Indication: Hypertension
     Dosage: 25 MG, QD
     Route: 048
     Dates: start: 20211210, end: 20220404
  3. CALCIUM CARBONATE\CHOLECALCIFEROL [Concomitant]
     Active Substance: CALCIUM CARBONATE\CHOLECALCIFEROL
     Indication: Product used for unknown indication
     Dosage: 1000 MG, QD
     Route: 048
     Dates: start: 20211027
  4. ELIQUIS [Concomitant]
     Active Substance: APIXABAN
     Indication: Blood pressure abnormal
     Dosage: 10 MG, QD, (5 MG, 2X/DAY)
     Route: 048
     Dates: start: 20211027, end: 20220404
  5. ALENDRONATE [Concomitant]
     Active Substance: ALENDRONATE SODIUM
     Indication: Polymyalgia rheumatica
     Dosage: 70 MG, QW
     Route: 048
     Dates: start: 20211123, end: 20220404
  6. BCG VACCINE [Concomitant]
     Active Substance: BCG VACCINE
     Indication: Bladder transitional cell carcinoma
     Dosage: 50 ML, (AS PER PROTOCOL ARM B, ONLY INDUCTION PERIOD (6 WEEKS))
     Route: 043
     Dates: start: 20201228, end: 20210222
  7. NOVORAPID [Concomitant]
     Active Substance: INSULIN ASPART
     Indication: Type 2 diabetes mellitus
     Dosage: UNK, QD, (100 IU/ML)
     Route: 058
     Dates: start: 2013
  8. ZOCOR [Concomitant]
     Active Substance: SIMVASTATIN
     Indication: Blood cholesterol abnormal
     Dosage: 40 MG, QD
     Route: 048
     Dates: start: 2013, end: 20220404
  9. PANTOMED [Concomitant]
     Indication: Prophylaxis
     Dosage: 10 MG, QD
     Route: 048
     Dates: start: 20211027
  10. PREDNISOLONE [Concomitant]
     Active Substance: PREDNISOLONE
     Indication: Polymyalgia rheumatica
     Dosage: 7 MG, QD
     Route: 048
     Dates: start: 20220326, end: 20220424
  11. LANTUS [Concomitant]
     Active Substance: INSULIN GLARGINE
     Indication: Type 2 diabetes mellitus
     Dosage: UNK, QD, (100 IU/ML)
     Route: 058
     Dates: start: 2013
  12. BISOPROLOL [Concomitant]
     Active Substance: BISOPROLOL
     Indication: Blood pressure abnormal
     Dosage: 2.5 MG, QD
     Route: 048
     Dates: start: 20210923
  13. BISOPROLOL [Concomitant]
     Active Substance: BISOPROLOL
     Dosage: 5 MG, QD
     Route: 048
     Dates: start: 20210923
  14. STEOVIT FORTE [Concomitant]
     Indication: Supplementation therapy
     Dosage: 800 IU, QD
     Route: 048
     Dates: start: 20211027

REACTIONS (1)
  - Chronic kidney disease [Not Recovered/Not Resolved]

NARRATIVE: CASE EVENT DATE: 20220404
